FAERS Safety Report 11631347 (Version 2)
Quarter: 2015Q4

REPORT INFORMATION
  Report Type: Report from Study
  Country: FR (occurrence: FR)
  Receive Date: 20151014
  Receipt Date: 20151021
  Transmission Date: 20160304
  Serious: Yes (Hospitalization, Other)
  Sender: FDA-Public Use
  Company Number: FR-BRISTOL-MYERS SQUIBB COMPANY-BMS-2015-053150

PATIENT
  Age: 63 Year
  Sex: Male
  Weight: 71 kg

DRUGS (5)
  1. NIVOLUMAB [Suspect]
     Active Substance: NIVOLUMAB
     Dosage: 220 MG, UNK
     Route: 042
     Dates: start: 20150821
  2. NIVOLUMAB [Suspect]
     Active Substance: NIVOLUMAB
     Dosage: 220 MG, UNK
     Route: 042
     Dates: start: 20150710
  3. NIVOLUMAB [Suspect]
     Active Substance: NIVOLUMAB
     Dosage: 220 MG, UNK
     Route: 042
     Dates: start: 20150724
  4. NIVOLUMAB [Suspect]
     Active Substance: NIVOLUMAB
     Dosage: 220 MG, UNK
     Route: 065
     Dates: start: 20150904
  5. NIVOLUMAB [Suspect]
     Active Substance: NIVOLUMAB
     Indication: NON-SMALL CELL LUNG CANCER
     Dosage: 210 MG, UNK
     Route: 042

REACTIONS (7)
  - Small intestinal perforation [Recovering/Resolving]
  - Blood alkaline phosphatase abnormal [Unknown]
  - Platelet disorder [Unknown]
  - Peritonitis [Recovering/Resolving]
  - Haemoglobin abnormal [Unknown]
  - Surgery [Unknown]
  - White blood cell count decreased [Unknown]

NARRATIVE: CASE EVENT DATE: 20150709
